FAERS Safety Report 13006703 (Version 1)
Quarter: 2016Q4

REPORT INFORMATION
  Report Type: Spontaneous
  Country: ES (occurrence: ES)
  Receive Date: 20161207
  Receipt Date: 20161207
  Transmission Date: 20170207
  Serious: Yes (Hospitalization)
  Sender: FDA-Public Use
  Company Number: ES-TEVA-715636ISR

PATIENT
  Age: 59 Year
  Sex: Male
  Weight: 103 kg

DRUGS (4)
  1. AZARGA COLIRIO [Concomitant]
     Indication: GLAUCOMA
     Dosage: AZARGA COLIRIO
     Route: 047
  2. METFORMINA KERN PHARMA 850 MG [Concomitant]
     Indication: DIABETES MELLITUS
     Route: 048
  3. LISINOPRIL RANBAXI 20 MG COMPRIMIDOS [Concomitant]
     Indication: HYPERTENSION
     Dosage: LISINOPRIL RANBAXI 20 MG COMPRIMIDOS
     Route: 048
  4. TEMOZOLOMIDA TEVA 140MG CAPSULAS DURAS [Suspect]
     Active Substance: TEMOZOLOMIDE
     Indication: GLIOBLASTOMA
     Dosage: 140 MILLIGRAM DAILY; TEMOZOLOMIDA TEVA 140MG CAPSULAS DURAS
     Route: 048
     Dates: start: 20160112, end: 201603

REACTIONS (2)
  - Nephrogenic diabetes insipidus [Recovered/Resolved]
  - Hypokalaemia [Recovered/Resolved]

NARRATIVE: CASE EVENT DATE: 20160310
